FAERS Safety Report 17078324 (Version 1)
Quarter: 2019Q4

REPORT INFORMATION
  Report Type: Spontaneous
  Country: ES (occurrence: ES)
  Receive Date: 20191126
  Receipt Date: 20191126
  Transmission Date: 20200122
  Serious: Yes (Other)
  Sender: FDA-Public Use
  Company Number: PHHY2018ES168065

PATIENT
  Age: 62 Year
  Sex: Male

DRUGS (7)
  1. ACITRETIN. [Concomitant]
     Active Substance: ACITRETIN
     Indication: PITYRIASIS RUBRA PILARIS
     Dosage: 25 MG ONCE DAILY (FROM WEEK 4)
     Route: 065
  2. ACITRETIN. [Concomitant]
     Active Substance: ACITRETIN
     Indication: PSORIASIS
  3. DIPHENHYDRAMINE HYDROCHLORIDE. [Concomitant]
     Active Substance: DIPHENHYDRAMINE HYDROCHLORIDE
     Indication: PREMEDICATION
     Dosage: 50 MG
     Route: 065
  4. INFLIXIMAB [Suspect]
     Active Substance: INFLIXIMAB
     Indication: PITYRIASIS RUBRA PILARIS
     Dosage: 5 MG/KG AT WEEKS 0, 4 UP TO 2 MONTHS (4 INFUSIONS)
     Route: 042
  5. INFLIXIMAB [Suspect]
     Active Substance: INFLIXIMAB
     Indication: PSORIASIS
  6. HYDROCORTISONE ACETATE. [Concomitant]
     Active Substance: HYDROCORTISONE ACETATE
     Indication: PREMEDICATION
     Dosage: 100 MG
     Route: 065
  7. ETANERCEPT [Suspect]
     Active Substance: ETANERCEPT
     Indication: PITYRIASIS RUBRA PILARIS
     Dosage: 50 MG
     Route: 065

REACTIONS (4)
  - Condition aggravated [Unknown]
  - Infusion related reaction [Unknown]
  - Off label use [Unknown]
  - Drug effective for unapproved indication [Unknown]
